FAERS Safety Report 7710540-5 (Version None)
Quarter: 2011Q3

REPORT INFORMATION
  Report Type: 
  Country: None (occurrence: None)
  Receive Date: 20110817
  Receipt Date: 20110809
  Transmission Date: 20111222
  Serious: Yes (Other)
  Sender: FDA-Public Use
  Company Number: 2011028857

PATIENT
  Age: 50 Year
  Sex: Female
  Weight: 79.3795 kg

DRUGS (35)
  1. SPIRIVA [Concomitant]
  2. BACTRIM [Concomitant]
  3. REGLAN [Concomitant]
  4. ALLEGRA [Concomitant]
  5. ADVAIR DISKUS 100/50 [Concomitant]
  6. THEOPHYLLINE [Concomitant]
  7. NAPROXEN [Concomitant]
  8. HIZENTRA [Suspect]
     Indication: IMMUNODEFICIENCY COMMON VARIABLE
     Dosage: (13 G 1X/WEEK, 13 G (65 ML) WEEKLY VIA 3-4 SITES OVER 1-2 HOURS)
     Dates: start: 20110105
  9. DUONEB [Concomitant]
  10. AMITRIPTYLINE HCL [Concomitant]
  11. VERAPAMIL [Concomitant]
  12. HYDROCHLOROTHIAZIDE [Concomitant]
  13. PROTONIX [Concomitant]
  14. ALDACTONE [Concomitant]
  15. HIZENTRA [Suspect]
  16. CYMBALTA [Concomitant]
  17. PREDNISONE [Concomitant]
  18. POTASSIUM CHLORIDE [Concomitant]
  19. BUMEX [Concomitant]
  20. REQUIP [Concomitant]
  21. CALCIUM + D (CALCIUM D3) [Concomitant]
  22. HIZENTRA [Suspect]
  23. HIZENTRA [Suspect]
  24. ZOLOFT [Concomitant]
  25. LASIX [Concomitant]
  26. HIZENTRA [Suspect]
  27. DOXYCYCLINE [Concomitant]
  28. AMBIEN [Concomitant]
  29. BUDESONIDE [Concomitant]
  30. AZITHROMYCIN [Concomitant]
  31. TRAZODONE HCL [Concomitant]
  32. ACTONEL [Concomitant]
  33. ACETAMINOPHEN [Concomitant]
  34. VIVELLE-DOT [Concomitant]
  35. HIZENTRA [Suspect]

REACTIONS (4)
  - BODY TEMPERATURE INCREASED [None]
  - HEADACHE [None]
  - HERPES VIRUS INFECTION [None]
  - LUNG INFECTION [None]
